FAERS Safety Report 5446869-3 (Version None)
Quarter: 2007Q3

REPORT INFORMATION
  Report Type: 
  Country: None (occurrence: None)
  Receive Date: 20070907
  Receipt Date: 20070828
  Transmission Date: 20080115
  Serious: Yes (Death, Life-Threatening, Hospitalization, Other)
  Sender: FDA-Public Use
  Company Number: MX-PFIZER INC-2007073436

PATIENT
  Sex: Female
  Weight: 70 kg

DRUGS (7)
  1. CHAMPIX [Suspect]
     Indication: SMOKING CESSATION THERAPY
     Route: 048
     Dates: start: 20070501, end: 20070703
  2. CLONAZEPAM [Concomitant]
     Route: 048
  3. ALPRAZOLAM [Concomitant]
     Route: 048
     Dates: end: 20070708
  4. AMLODIPINE [Concomitant]
     Route: 048
     Dates: end: 20070708
  5. CLONAZEPAM [Concomitant]
     Dates: end: 20070708
  6. ANTIDEPRESSANTS [Concomitant]
     Dates: end: 20070708
  7. ANTIPSYCHOTICS [Concomitant]
     Dates: end: 20070708

REACTIONS (5)
  - DEATH [None]
  - DRUG TOXICITY [None]
  - HEPATIC FAILURE [None]
  - METABOLIC ENCEPHALOPATHY [None]
  - RENAL FAILURE [None]
